FAERS Safety Report 13055909 (Version 1)
Quarter: 2016Q4

REPORT INFORMATION
  Report Type: Spontaneous
  Country: US (occurrence: US)
  Receive Date: 20161222
  Receipt Date: 20161222
  Transmission Date: 20170207
  Serious: Yes (Hospitalization, Other)
  Sender: FDA-Public Use
  Company Number: US-PFIZER INC-2016587796

PATIENT
  Age: 37 Year
  Sex: Male

DRUGS (1)
  1. VERAPAMIL HCL [Suspect]
     Active Substance: VERAPAMIL HYDROCHLORIDE
     Indication: SUICIDE ATTEMPT
     Dosage: APPROXIMATELY 30 SUSTAINED-RELEASE VERAPAMIL TABLETS (7200 MG)

REACTIONS (4)
  - Overdose [Recovered/Resolved]
  - Blood pressure systolic decreased [Recovered/Resolved]
  - Alcohol interaction [Recovered/Resolved]
  - Suicide attempt [Recovered/Resolved]
